FAERS Safety Report 8607987-1 (Version None)
Quarter: 2012Q3

REPORT INFORMATION
  Report Type: 
  Country: None (occurrence: None)
  Receive Date: 20120726
  Receipt Date: 20120726
  Transmission Date: 20120928
  Serious: Yes (Other)
  Sender: FDA-Public Use
  Company Number: None

PATIENT
  Age: 71 Year
  Sex: Male
  Weight: 67.4 kg

DRUGS (1)
  1. BMS 936558 IV [Suspect]
     Indication: MALIGNANT MELANOMA
     Dosage: IV Q 2 WEEKS 208 MG.
     Route: 042

REACTIONS (1)
  - RASH [None]
